FAERS Safety Report 5109690-1 (Version None)
Quarter: 2006Q3

REPORT INFORMATION
  Report Type: 
  Country: None (occurrence: None)
  Receive Date: 20060920
  Receipt Date: 20060914
  Transmission Date: 20061208
  Serious: Yes (Hospitalization)
  Sender: FDA-Public Use
  Company Number: AT-MERCK-0609USA03032

PATIENT
  Age: 75 Year
  Sex: Female

DRUGS (7)
  1. HYDRODIURIL [Suspect]
     Route: 048
  2. VENLAFAXINE HYDROCHLORIDE [Suspect]
     Indication: DEPRESSIVE SYMPTOM
     Route: 065
  3. VENLAFAXINE HYDROCHLORIDE [Suspect]
     Route: 065
  4. LISINOPRIL [Concomitant]
     Route: 065
  5. AMLODIPINE BESYLATE [Concomitant]
     Route: 065
  6. PRAVASTATIN SODIUM [Concomitant]
     Route: 065
  7. ASPIRIN [Concomitant]
     Route: 065

REACTIONS (7)
  - BLOOD CHLORIDE DECREASED [None]
  - COGNITIVE DISORDER [None]
  - CONFUSIONAL STATE [None]
  - DEPRESSION [None]
  - HYPONATRAEMIA [None]
  - INCORRECT DOSE ADMINISTERED [None]
  - TREATMENT NONCOMPLIANCE [None]
